FAERS Safety Report 6343734-4 (Version None)
Quarter: 2009Q3

REPORT INFORMATION
  Report Type: 
  Country: None (occurrence: None)
  Receive Date: 20090908
  Receipt Date: 20090831
  Transmission Date: 20100115
  Serious: Yes (Hospitalization)
  Sender: FDA-Public Use
  Company Number: A0805934A

PATIENT
  Sex: Male

DRUGS (4)
  1. SERETIDE [Suspect]
     Indication: BRONCHIOLITIS
     Dosage: 1PUFF TWICE PER DAY
     Route: 055
     Dates: start: 20090501, end: 20090601
  2. SERETIDE [Suspect]
     Dosage: 1PUFF TWICE PER DAY
     Route: 055
     Dates: start: 20090701, end: 20090831
  3. RANITIDINE [Concomitant]
  4. DRAMIN [Concomitant]

REACTIONS (4)
  - CYANOSIS [None]
  - MUSCLE SPASMS [None]
  - SOMNOLENCE [None]
  - URINARY TRACT INFECTION [None]
